FAERS Safety Report 19973116 (Version 1)
Quarter: 2021Q4

REPORT INFORMATION
  Report Type: Spontaneous
  Country: US (occurrence: US)
  Receive Date: 20211019
  Receipt Date: 20211019
  Transmission Date: 20220304
  Serious: Yes (Hospitalization)
  Sender: FDA-Public Use
  Company Number: None

PATIENT
  Age: 57 Year
  Sex: Male

DRUGS (1)
  1. EPCLUSA [Suspect]
     Active Substance: SOFOSBUVIR\VELPATASVIR
     Indication: Chest pain
     Dosage: OTHER DOSE:400-100MG;
     Route: 048
     Dates: start: 20210813

REACTIONS (1)
  - Chest pain [None]

NARRATIVE: CASE EVENT DATE: 20211019
